FAERS Safety Report 6453289-1 (Version None)
Quarter: 2009Q4

REPORT INFORMATION
  Report Type: 
  Country: None (occurrence: None)
  Receive Date: 20091123
  Receipt Date: 20091123
  Transmission Date: 20100525
  Serious: Yes (Disabling, Other)
  Sender: FDA-Public Use
  Company Number: None

PATIENT
  Age: 59 Year
  Sex: Female
  Weight: 81.6475 kg

DRUGS (1)
  1. LEVAQUIN [Suspect]
     Indication: INFECTION
     Dosage: 750 MG ONCE DAILY PO
     Route: 048
     Dates: start: 20091029, end: 20091111

REACTIONS (3)
  - BURNING SENSATION [None]
  - MUSCULOSKELETAL PAIN [None]
  - MYALGIA [None]
